FAERS Safety Report 6921460-8 (Version None)
Quarter: 2010Q3

REPORT INFORMATION
  Report Type: 
  Country: None (occurrence: None)
  Receive Date: 20100812
  Receipt Date: 20081202
  Transmission Date: 20110219
  Serious: No
  Sender: FDA-Public Use
  Company Number: A0758926A

PATIENT
  Age: 66 Year
  Sex: Female

DRUGS (1)
  1. TAGAMET HB 200 [Suspect]
     Route: 048
     Dates: start: 20081201, end: 20081201

REACTIONS (2)
  - EXPIRED DRUG ADMINISTERED [None]
  - FAECES DISCOLOURED [None]
